FAERS Safety Report 12453161 (Version 1)
Quarter: 2016Q2

REPORT INFORMATION
  Report Type: Spontaneous
  Country: US (occurrence: US)
  Receive Date: 20160609
  Receipt Date: 20160609
  Transmission Date: 20160815
  Serious: Yes (Other)
  Sender: FDA-Public Use
  Company Number: US-MEDA-2016060001

PATIENT
  Age: 39 Year
  Sex: Female

DRUGS (5)
  1. VENLAFAXINE [Suspect]
     Active Substance: VENLAFAXINE HYDROCHLORIDE
  2. SERTRALINE [Suspect]
     Active Substance: SERTRALINE HYDROCHLORIDE
  3. ALPRAZOLAM. [Suspect]
     Active Substance: ALPRAZOLAM
     Indication: PHOBIA OF FLYING
  4. ALCOHOL. [Suspect]
     Active Substance: ALCOHOL
     Indication: PHOBIA OF FLYING
  5. ZOLPIDEM [Suspect]
     Active Substance: ZOLPIDEM\ZOLPIDEM TARTRATE
     Indication: INSOMNIA
     Dosage: AT NIGHT
     Route: 048

REACTIONS (11)
  - Drug interaction [Unknown]
  - Delirium [Unknown]
  - Toxicity to various agents [Unknown]
  - Euphoric mood [Unknown]
  - Homicide [Unknown]
  - Suicidal ideation [Unknown]
  - Akathisia [Unknown]
  - Aggression [Unknown]
  - Agitation [Unknown]
  - Intentional overdose [Unknown]
  - Restlessness [Unknown]
